FAERS Safety Report 12832329 (Version 1)
Quarter: 2016Q4

REPORT INFORMATION
  Report Type: Spontaneous
  Country: US (occurrence: US)
  Receive Date: 20161010
  Receipt Date: 20161010
  Transmission Date: 20170207
  Serious: No
  Sender: FDA-Public Use
  Company Number: US-JAZZ-2016-US-013091

PATIENT
  Sex: Female

DRUGS (29)
  1. NORVASC [Suspect]
     Active Substance: AMLODIPINE BESYLATE
     Indication: PRODUCT USED FOR UNKNOWN INDICATION
     Dosage: UNKNOWN DOSE
  2. LOSARTAN POTASSIUM. [Concomitant]
     Active Substance: LOSARTAN POTASSIUM
  3. AMLODIPINE BESYLATE. [Concomitant]
     Active Substance: AMLODIPINE BESYLATE
  4. B-COMPLEX + VITAMIN C [Concomitant]
  5. NAPROXEN SODIUM. [Concomitant]
     Active Substance: NAPROXEN SODIUM
  6. IRON [Concomitant]
     Active Substance: IRON
  7. LORATADINE. [Concomitant]
     Active Substance: LORATADINE
  8. NASONEX [Concomitant]
     Active Substance: MOMETASONE FUROATE
  9. ROLAIDS [Concomitant]
     Active Substance: CALCIUM CARBONATE\MAGNESIUM HYDROXIDE
  10. CORTISONE ACETATE. [Concomitant]
     Active Substance: CORTISONE ACETATE
  11. ALLEGRA-D [Concomitant]
     Active Substance: FEXOFENADINE\PSEUDOEPHEDRINE
  12. BENADRYL ALLERGY [Concomitant]
     Active Substance: DIPHENHYDRAMINE HYDROCHLORIDE
  13. ZYRTEC [Concomitant]
     Active Substance: CETIRIZINE HYDROCHLORIDE
  14. BIOTIN [Concomitant]
     Active Substance: BIOTIN
  15. TYLENOL [Concomitant]
     Active Substance: ACETAMINOPHEN
  16. TUMS EX [Concomitant]
     Active Substance: CALCIUM CARBONATE
  17. XYREM [Suspect]
     Active Substance: SODIUM OXYBATE
     Dosage: 3.75 G, BID
     Route: 048
     Dates: start: 201511
  18. XYREM [Suspect]
     Active Substance: SODIUM OXYBATE
     Indication: NARCOLEPSY
     Dosage: 2.25 G, BID
     Route: 048
     Dates: start: 201510, end: 201510
  19. FERROUS SULFATE. [Concomitant]
     Active Substance: FERROUS SULFATE
  20. ALCOHOL INJECTION [Suspect]
     Active Substance: ALCOHOL
     Indication: PRODUCT USED FOR UNKNOWN INDICATION
     Dosage: UNKNOWN DOSE
     Dates: end: 201605
  21. JUBLIA [Concomitant]
     Active Substance: EFINACONAZOLE
  22. XYREM [Suspect]
     Active Substance: SODIUM OXYBATE
     Indication: CATAPLEXY
     Dosage: 3 G, BID
     Route: 048
     Dates: start: 201510, end: 201511
  23. GABAPENTIN. [Concomitant]
     Active Substance: GABAPENTIN
  24. MULTIVITAMINS [Concomitant]
     Active Substance: VITAMINS
  25. REQUIP [Suspect]
     Active Substance: ROPINIROLE HYDROCHLORIDE
     Indication: PRODUCT USED FOR UNKNOWN INDICATION
     Dosage: UNKNOWN DOSE
     Dates: start: 20150807
  26. PREMARINA [Concomitant]
  27. ALLEGRA ALLERGY [Concomitant]
     Active Substance: FEXOFENADINE HYDROCHLORIDE
  28. IBUPROFEN. [Concomitant]
     Active Substance: IBUPROFEN
  29. LIDOCAINE. [Concomitant]
     Active Substance: LIDOCAINE

REACTIONS (2)
  - Drug ineffective [Unknown]
  - Unevaluable event [Unknown]
